FAERS Safety Report 16480343 (Version 2)
Quarter: 2019Q3

REPORT INFORMATION
  Report Type: Spontaneous
  Country: SK (occurrence: SK)
  Receive Date: 20190626
  Receipt Date: 20190703
  Transmission Date: 20191004
  Serious: No
  Sender: FDA-Public Use
  Company Number: SK-NOVOPROD-664878

PATIENT
  Age: 63 Year
  Sex: Female
  Weight: 70 kg

DRUGS (2)
  1. XULTOPHY 100/3.6 [Suspect]
     Active Substance: INSULIN DEGLUDEC\LIRAGLUTIDE
     Indication: DIABETES MELLITUS
     Dosage: UNK
     Route: 058
     Dates: start: 20190126
  2. XULTOPHY 100/3.6 [Suspect]
     Active Substance: INSULIN DEGLUDEC\LIRAGLUTIDE
     Dosage: 12J(DOSE DECREASED)
     Route: 058
     Dates: end: 20190522

REACTIONS (10)
  - Asthma [Unknown]
  - Hyperglycaemia [Not Recovered/Not Resolved]
  - Vomiting [Unknown]
  - Nausea [Unknown]
  - Diabetic microangiopathy [Unknown]
  - Myocardial ischaemia [Unknown]
  - Haemodynamic instability [Unknown]
  - Drug ineffective [Unknown]
  - Discomfort [Unknown]
  - Hyperlipidaemia [Unknown]
